FAERS Safety Report 10178672 (Version 1)
Quarter: 2014Q2

REPORT INFORMATION
  Report Type: Spontaneous
  Country: US (occurrence: US)
  Receive Date: 20140519
  Receipt Date: 20140519
  Transmission Date: 20141212
  Serious: Yes (Other)
  Sender: FDA-Public Use
  Company Number: US-TEVA-482159USA

PATIENT
  Sex: Male

DRUGS (4)
  1. CITALOPRAM [Suspect]
  2. OLANZAPINE [Suspect]
  3. XANAX [Suspect]
     Dosage: 15 MILLIGRAM DAILY;
  4. ALLOPURINOL [Concomitant]
     Indication: GOUT

REACTIONS (4)
  - Convulsion [Unknown]
  - Myocardial infarction [Unknown]
  - Insomnia [Unknown]
  - Irritability [Unknown]
